FAERS Safety Report 7460571-8 (Version None)
Quarter: 2011Q2

REPORT INFORMATION
  Report Type: 
  Country: None (occurrence: None)
  Receive Date: 20110505
  Receipt Date: 20110426
  Transmission Date: 20111010
  Serious: Yes (Disabling)
  Sender: FDA-Public Use
  Company Number: US-MYLANLABS-2011S1007082

PATIENT
  Age: 37 Year
  Sex: Female

DRUGS (7)
  1. PROZAC [Concomitant]
  2. ASPIRIN [Concomitant]
  3. TRILEPTAL [Concomitant]
  4. LYRICA [Concomitant]
  5. RISPERIDONE [Suspect]
     Indication: SCHIZOAFFECTIVE DISORDER
     Route: 048
  6. LIDOCAINE [Concomitant]
  7. NUCYNTA [Concomitant]

REACTIONS (1)
  - CYSTITIS INTERSTITIAL [None]
